FAERS Safety Report 7054516-2 (Version None)
Quarter: 2010Q4

REPORT INFORMATION
  Report Type: 
  Country: None (occurrence: None)
  Receive Date: 20101020
  Receipt Date: 20101012
  Transmission Date: 20110411
  Serious: Yes (Hospitalization, Other)
  Sender: FDA-Public Use
  Company Number: US-ROXANE LABORATORIES, INC.-2010-RO-01350RO

PATIENT
  Age: 62 Year
  Sex: Female

DRUGS (10)
  1. MERCAPTOPURINE [Suspect]
     Indication: CROHN'S DISEASE
     Dosage: 100 MG
     Dates: start: 20020101
  2. MERCAPTOPURINE [Suspect]
  3. METHOTREXATE [Suspect]
     Indication: PSORIASIS
  4. METHOTREXATE [Suspect]
     Indication: PSORIATIC ARTHROPATHY
  5. MESALAMINE [Suspect]
     Indication: CROHN'S DISEASE
     Dosage: 2 G
     Dates: start: 20060101
  6. ALLOPURINOL [Suspect]
     Dosage: 100 MG
     Dates: start: 20080301
  7. INFLIXIMAB [Suspect]
     Indication: PSORIASIS
  8. INFLIXIMAB [Suspect]
     Indication: PSORIATIC ARTHROPATHY
  9. ETANERCEPT [Suspect]
     Indication: PSORIASIS
     Dates: end: 20080701
  10. ETANERCEPT [Suspect]
     Indication: PSORIATIC ARTHROPATHY

REACTIONS (5)
  - ACUTE MYELOID LEUKAEMIA [None]
  - ANAEMIA MACROCYTIC [None]
  - COLONIC STENOSIS [None]
  - LEUKOPENIA [None]
  - VITAMIN B12 DEFICIENCY [None]
